FAERS Safety Report 7118030-8 (Version None)
Quarter: 2010Q4

REPORT INFORMATION
  Report Type: 
  Country: None (occurrence: None)
  Receive Date: 20101118
  Receipt Date: 20101118
  Transmission Date: 20110411
  Serious: Yes (Death)
  Sender: FDA-Public Use
  Company Number: None

PATIENT
  Sex: Female
  Weight: 87 kg

DRUGS (2)
  1. CLONIDINE [Suspect]
     Indication: HYPERTENSION
     Dosage: 0.1 MG Q6H PRN PO
     Route: 048
     Dates: start: 20101019, end: 20101020
  2. CLONIDINE [Suspect]
     Indication: HYPERTENSION

REACTIONS (4)
  - HEART RATE DECREASED [None]
  - HYPOXIC-ISCHAEMIC ENCEPHALOPATHY [None]
  - UNRESPONSIVE TO STIMULI [None]
  - VENTRICULAR FIBRILLATION [None]
